FAERS Safety Report 5761649-7 (Version None)
Quarter: 2008Q2

REPORT INFORMATION
  Report Type: 
  Country: None (occurrence: None)
  Receive Date: 20080606
  Receipt Date: 20080527
  Transmission Date: 20081010
  Serious: Yes (Hospitalization, Other)
  Sender: FDA-Public Use
  Company Number: US-PFIZER INC-2008001718

PATIENT
  Sex: Male
  Weight: 113.4 kg

DRUGS (3)
  1. CELEBREX [Suspect]
     Indication: OSTEOARTHRITIS
     Route: 048
  2. CELEBREX [Suspect]
     Indication: PAIN
  3. CELEBREX [Suspect]
     Indication: RHEUMATOID ARTHRITIS

REACTIONS (1)
  - ARTERIAL OCCLUSIVE DISEASE [None]
